FAERS Safety Report 7571032-X (Version None)
Quarter: 2011Q2

REPORT INFORMATION
  Report Type: 
  Country: None (occurrence: None)
  Receive Date: 20110624
  Receipt Date: 20110614
  Transmission Date: 20111010
  Serious: Yes (Death)
  Sender: FDA-Public Use
  Company Number: HU-ROCHE-783005

PATIENT
  Age: 71 Year
  Sex: Male

DRUGS (5)
  1. FRAGMIN [Concomitant]
     Indication: HYPERTENSION
     Dosage: FREQUENCY: DAILY
  2. FLUOROURACIL [Concomitant]
  3. AVASTIN [Suspect]
     Indication: COLORECTAL CANCER
     Dosage: ROUTE: INFUSION
     Route: 050
  4. IRINOTECAN HYDROCHLORIDE [Concomitant]
  5. LEUCOVORIN CALCIUM [Concomitant]

REACTIONS (2)
  - DUODENAL PERFORATION [None]
  - DIARRHOEA [None]
